FAERS Safety Report 7370036-X (Version None)
Quarter: 2011Q1

REPORT INFORMATION
  Report Type: 
  Country: None (occurrence: None)
  Receive Date: 20110323
  Receipt Date: 20110309
  Transmission Date: 20110831
  Serious: Yes (Hospitalization, Other)
  Sender: FDA-Public Use
  Company Number: PHHY2011SE19083

PATIENT
  Sex: Male

DRUGS (2)
  1. RITALIN [Suspect]
     Dates: end: 20110101
  2. THERALEN [Suspect]
     Dates: end: 20110101

REACTIONS (2)
  - ATAXIA [None]
  - HYPERKINESIA [None]
